FAERS Safety Report 20900002 (Version 1)
Quarter: 2022Q2

REPORT INFORMATION
  Report Type: Spontaneous
  Country: US (occurrence: None)
  Receive Date: 20220531
  Receipt Date: 20220531
  Transmission Date: 20220720
  Serious: Yes (Other)
  Sender: FDA-Public Use
  Company Number: None

PATIENT
  Sex: Male

DRUGS (6)
  1. TESTOSTERONE CYPIONATE [Suspect]
     Active Substance: TESTOSTERONE CYPIONATE
     Indication: Testicular disorder
     Dosage: INJECT 1 ML IN THE MUSCLE EVERY 2 WEEKS?
     Route: 030
     Dates: start: 20220528
  2. DEPO-TESTOT INJ [Concomitant]
  3. DEPO-TESTEROSTERONE [Concomitant]
  4. LISINOPRIL [Concomitant]
     Active Substance: LISINOPRIL
  5. SIMVASTATIN [Concomitant]
     Active Substance: SIMVASTATIN
  6. XALATAN SOL [Concomitant]

REACTIONS (1)
  - Orchidectomy [None]
